FAERS Safety Report 10028806 (Version 3)
Quarter: 2014Q2

REPORT INFORMATION
  Report Type: Report from Study
  Country: DE (occurrence: DE)
  Receive Date: 20140321
  Receipt Date: 20140425
  Transmission Date: 20141212
  Serious: Yes (Death, Hospitalization)
  Sender: FDA-Public Use
  Company Number: PHHY2013DE138494

PATIENT
  Sex: Female
  Weight: 64 kg

DRUGS (13)
  1. AFINITOR [Suspect]
     Indication: BREAST CANCER METASTATIC
     Dosage: 10 MG, QD
     Route: 048
     Dates: start: 20130924, end: 20140227
  2. EXEMESTANE [Concomitant]
     Indication: BREAST CANCER METASTATIC
     Dosage: 25 MG, QD
     Route: 048
     Dates: start: 20130924, end: 20140227
  3. BISPHOSPHONATES [Concomitant]
  4. L-THYROXIN [Concomitant]
     Dosage: 75 UG, QD
  5. L-THYROXIN [Concomitant]
     Dosage: 100 UG, QD
  6. NEBIVOLOL [Concomitant]
     Dosage: 5 MG, QD
  7. TOREM [Concomitant]
     Dosage: 5 MG, BID
  8. TOREM [Concomitant]
     Dosage: 10 MG, BID
  9. VIANI [Concomitant]
     Dosage: 2 DF, DAILY
  10. SPIRIVA [Concomitant]
     Dosage: 18 UG, QD
  11. ACC [Concomitant]
     Dosage: 600 MG, QD
  12. OMEPRAZOL [Concomitant]
  13. OXYGEN [Concomitant]

REACTIONS (3)
  - Respiratory failure [Fatal]
  - Dyspnoea [Fatal]
  - Pneumonia [Unknown]
